FAERS Safety Report 9256415 (Version 5)
Quarter: 2014Q2

REPORT INFORMATION
  Report Type: Report from Study
  Country: DE (occurrence: DE)
  Receive Date: 20130426
  Receipt Date: 20140401
  Transmission Date: 20141212
  Serious: Yes (Hospitalization)
  Sender: FDA-Public Use
  Company Number: DE-ROCHE-1218355

PATIENT
  Age: 54 Year
  Sex: Female

DRUGS (20)
  1. PEG-INTERFERON ALFA 2A [Suspect]
     Indication: HEPATITIS C
     Route: 058
     Dates: start: 20121121
  2. RIBAVIRIN [Suspect]
     Indication: HEPATITIS C
     Route: 048
     Dates: start: 20121121
  3. INCIVO [Suspect]
     Indication: HEPATITIS C
     Route: 048
     Dates: start: 20121121, end: 20130213
  4. CANDESARTAN [Concomitant]
     Route: 065
  5. BISOPROLOL [Concomitant]
     Route: 065
  6. AMLODIPIN [Concomitant]
     Route: 065
  7. RAMIPRIL [Concomitant]
     Route: 065
  8. MOXONIDINE [Concomitant]
     Route: 065
  9. MINOXIDIL [Concomitant]
     Route: 065
  10. CLONIDIN (GERMANY) [Concomitant]
     Route: 065
  11. CALCIUM CARBONATE [Concomitant]
  12. TORASEMID [Concomitant]
     Dosage: 1/2
     Route: 065
  13. HYDROCHLOROTHIAZIDE [Concomitant]
     Dosage: 1/2
     Route: 065
  14. NATRIUM BICARBONATE [Concomitant]
     Route: 065
  15. LEVOTHYROXINE [Concomitant]
     Route: 065
  16. OMEPRAZOL [Concomitant]
     Route: 065
  17. CALCITRIOL [Concomitant]
     Route: 065
  18. CETRIZINE [Concomitant]
     Dosage: 10 MG WHEN NEEDED
     Route: 065
  19. TIOTROPIUM [Concomitant]
     Route: 065
  20. SALBUTAMOL [Concomitant]

REACTIONS (1)
  - Hypertensive crisis [Recovered/Resolved]
